FAERS Safety Report 8851982 (Version 1)
Quarter: 2012Q4

REPORT INFORMATION
  Report Type: 
  Country: FR (occurrence: FR)
  Receive Date: 20121022
  Receipt Date: 20121022
  Transmission Date: 20130627
  Serious: Yes (Death, Life-Threatening, Other)
  Sender: FDA-Public Use
  Company Number: FR-BRISTOL-MYERS SQUIBB COMPANY-17034174

PATIENT
  Age: 66 Year
  Sex: Male

DRUGS (3)
  1. COUMADINE [Suspect]
     Route: 048
     Dates: end: 20120728
  2. KARDEGIC [Interacting]
     Dosage: powder for oral solution in single dose sachet
     Route: 048
  3. PLAVIX [Interacting]
     Route: 048

REACTIONS (4)
  - Subdural haematoma [Fatal]
  - Intraventricular haemorrhage [Fatal]
  - Head injury [Fatal]
  - Drug interaction [Unknown]
